FAERS Safety Report 16965080 (Version 1)
Quarter: 2019Q4

REPORT INFORMATION
  Report Type: Spontaneous
  Country: GB (occurrence: GB)
  Receive Date: 20191028
  Receipt Date: 20191028
  Transmission Date: 20200122
  Serious: Yes (Other)
  Sender: FDA-Public Use
  Company Number: GB-TEVA-2019-GB-1127738

PATIENT
  Age: 58 Year
  Sex: Male
  Weight: 66 kg

DRUGS (11)
  1. SILDENAFIL. [Concomitant]
     Active Substance: SILDENAFIL
     Dosage: USE AS DIRECTED
     Dates: start: 20190308
  2. METFORMIN [Concomitant]
     Active Substance: METFORMIN HYDROCHLORIDE
     Dosage: 1 WITH BREAKFAST AND 2 WITH EVENING MEAL EACH DAY
     Dates: start: 20190308
  3. CALCICHEW D3 [Concomitant]
     Active Substance: CALCIUM\CHOLECALCIFEROL
     Dosage: CHEW OR SUCK , 2 DF
     Dates: start: 20190308
  4. ATORVASTATIN [Concomitant]
     Active Substance: ATORVASTATIN
     Dosage: AT NIGHT 1 DF
     Dates: start: 20190308
  5. RISEDRONATE SODIUM. [Concomitant]
     Active Substance: RISEDRONATE SODIUM
     Dosage: 1 DF
     Dates: start: 20190308
  6. RANITIDINE. [Suspect]
     Active Substance: RANITIDINE
     Dosage: 300 MG
     Dates: start: 20190308, end: 20190903
  7. FERROUS FUMARATE [Concomitant]
     Active Substance: FERROUS FUMARATE
     Dosage: 3 DF
     Dates: start: 20190308
  8. FOLIC ACID. [Concomitant]
     Active Substance: FOLIC ACID
     Dates: start: 20190627, end: 20190822
  9. BETNOVATE [Concomitant]
     Active Substance: BETAMETHASONE
     Dosage: APPLY THINLY 1-2 TIMES A DAY TO AFFECTED AREAS
     Dates: start: 20190627, end: 20190725
  10. ACETYLSALICYLIC ACID [Concomitant]
     Active Substance: ASPIRIN
     Dosage: 1 DF
     Dates: start: 20190308
  11. DOUBLEBASE [Concomitant]
     Active Substance: ISOPROPYL MYRISTATE\PARAFFIN
     Dates: start: 20190308

REACTIONS (3)
  - Abdominal pain [Unknown]
  - Headache [Recovering/Resolving]
  - Deafness [Unknown]
